FAERS Safety Report 14489919 (Version 2)
Quarter: 2018Q1

REPORT INFORMATION
  Report Type: Report from Study
  Country: None (occurrence: CA)
  Receive Date: 20180206
  Receipt Date: 20180207
  Transmission Date: 20180509
  Serious: Yes (Hospitalization, Other)
  Sender: FDA-Public Use
  Company Number: CA-ABBVIE-17K-028-2109545-00

PATIENT
  Age: 80 Year
  Sex: Male

DRUGS (3)
  1. WARFARIN [Concomitant]
     Active Substance: WARFARIN
     Indication: PULMONARY EMBOLISM
     Dates: start: 2015
  2. HUMIRA [Suspect]
     Active Substance: ADALIMUMAB
     Indication: CROHN^S DISEASE
     Route: 058
     Dates: start: 20160219
  3. IMODIUM [Concomitant]
     Active Substance: LOPERAMIDE HYDROCHLORIDE
     Indication: CROHN^S DISEASE

REACTIONS (11)
  - Cerebrovascular accident [Recovering/Resolving]
  - Memory impairment [Not Recovered/Not Resolved]
  - Urine abnormality [Recovered/Resolved]
  - Appendicitis [Recovered/Resolved]
  - Intestinal resection [Recovered/Resolved]
  - Arterial perforation [Not Recovered/Not Resolved]
  - Urine odour abnormal [Recovered/Resolved]
  - Glaucoma [Not Recovered/Not Resolved]
  - Aphasia [Not Recovered/Not Resolved]
  - Cerebrovascular accident [Recovered/Resolved]
  - Urinary retention [Not Recovered/Not Resolved]

NARRATIVE: CASE EVENT DATE: 201609
